FAERS Safety Report 5854787-1 (Version None)
Quarter: 2008Q3

REPORT INFORMATION
  Report Type: 
  Country: None (occurrence: None)
  Receive Date: 20080822
  Receipt Date: 20080812
  Transmission Date: 20090109
  Serious: Yes (Hospitalization)
  Sender: FDA-Public Use
  Company Number: GB-PFIZER INC-2008068320

PATIENT
  Age: 61 Year
  Sex: Female

DRUGS (2)
  1. PHENYTOIN [Suspect]
     Indication: EPILEPSY
  2. PRIMIDONE [Suspect]
     Indication: EPILEPSY

REACTIONS (3)
  - DYSPNOEA EXERTIONAL [None]
  - MYOPATHY [None]
  - OSTEOMALACIA [None]
